FAERS Safety Report 8500918-4 (Version None)
Quarter: 2012Q3

REPORT INFORMATION
  Report Type: 
  Country: None (occurrence: None)
  Receive Date: 20120710
  Receipt Date: 20120709
  Transmission Date: 20120928
  Serious: Yes (Other)
  Sender: FDA-Public Use
  Company Number: PHHY2012IE053346

PATIENT
  Sex: Female

DRUGS (2)
  1. EVENING PRIMROSE [Concomitant]
     Dosage: UNK UKN, UNK
     Route: 048
     Dates: start: 20120626
  2. GILENYA [Suspect]
     Indication: RELAPSING-REMITTING MULTIPLE SCLEROSIS
     Dosage: 0.5 MG, UNK
     Route: 048
     Dates: start: 20120514

REACTIONS (3)
  - MOOD SWINGS [None]
  - ACNE [None]
  - DEPRESSED MOOD [None]
